FAERS Safety Report 17929930 (Version 3)
Quarter: 2020Q3

REPORT INFORMATION
  Report Type: Spontaneous
  Country: US (occurrence: US)
  Receive Date: 20200623
  Receipt Date: 20200717
  Transmission Date: 20201103
  Serious: Yes (Hospitalization, Other)
  Sender: FDA-Public Use
  Company Number: US-GLAXOSMITHKLINE-US2020AMR105514

PATIENT
  Sex: Female

DRUGS (1)
  1. ZEJULA [Suspect]
     Active Substance: NIRAPARIB
     Indication: OVARIAN CANCER
     Dosage: 300 MG, QD
     Dates: start: 20200602

REACTIONS (10)
  - Anaemia [Unknown]
  - Hospitalisation [Unknown]
  - Lethargy [Unknown]
  - Platelet count decreased [Not Recovered/Not Resolved]
  - Insomnia [Unknown]
  - Neuropathy peripheral [Unknown]
  - Palpitations [Unknown]
  - Internal haemorrhage [Unknown]
  - Blood pressure increased [Unknown]
  - Malaise [Unknown]
